FAERS Safety Report 7911098-8 (Version None)
Quarter: 2011Q4

REPORT INFORMATION
  Report Type: 
  Country: None (occurrence: None)
  Receive Date: 20111108
  Receipt Date: 20111103
  Transmission Date: 20120403
  Serious: Yes (Death)
  Sender: FDA-Public Use
  Company Number: 2010SP035865

PATIENT
  Age: 20 Year
  Sex: Male
  Weight: 77 kg

DRUGS (2)
  1. REBETOL [Suspect]
     Indication: HEPATITIS C
  2. VIRAFERONPEG [Suspect]
     Indication: HEPATITIS C
     Dates: end: 20090707

REACTIONS (1)
  - CARDIAC ARREST [None]
